FAERS Safety Report 19955132 (Version 2)
Quarter: 2021Q4

REPORT INFORMATION
  Report Type: Report from Study
  Country: US (occurrence: US)
  Receive Date: 20211013
  Receipt Date: 20211014
  Transmission Date: 20220304
  Serious: Yes (Other)
  Sender: FDA-Public Use
  Company Number: US-G1-000351

PATIENT
  Age: 46 Year
  Sex: Male
  Weight: 85.2 kg

DRUGS (45)
  1. TRILACICLIB [Suspect]
     Active Substance: TRILACICLIB
     Indication: Myelosuppression
     Dosage: TIME INTERVAL: CYCLICAL; 240 MG/M2 ON DAY 1 AND 2 OF EACH CYCLE OF THERAPY
     Route: 041
     Dates: start: 20210407, end: 20210408
  2. TRILACICLIB [Suspect]
     Active Substance: TRILACICLIB
     Indication: Myelosuppression
     Dosage: TIME INTERVAL: CYCLICAL; 240 MG/M2 ON DAY 1 AND 2 OF EACH CYCLE OF THERAPY
     Route: 041
     Dates: start: 20210421, end: 20210421
  3. TRILACICLIB [Suspect]
     Active Substance: TRILACICLIB
     Indication: Myelosuppression
     Dosage: TIME INTERVAL: CYCLICAL; 240 MG/M2 ON DAY 1 AND 2 OF EACH CYCLE OF THERAPY
     Route: 041
     Dates: start: 20210505, end: 20210505
  4. TRILACICLIB [Suspect]
     Active Substance: TRILACICLIB
     Indication: Myelosuppression
     Dosage: TIME INTERVAL: CYCLICAL; 240 MG/M2 ON DAY 1 AND 2 OF EACH CYCLE OF THERAPY
     Route: 041
     Dates: start: 20210519, end: 20210520
  5. TRILACICLIB [Suspect]
     Active Substance: TRILACICLIB
     Indication: Myelosuppression
     Dosage: TIME INTERVAL: CYCLICAL; 240 MG/M2 ON DAY 1 AND 2 OF EACH CYCLE OF THERAPY
     Route: 041
     Dates: start: 20210602, end: 20210603
  6. TRILACICLIB [Suspect]
     Active Substance: TRILACICLIB
     Indication: Myelosuppression
     Dosage: TIME INTERVAL: CYCLICAL; 240 MG/M2 ON DAY 1 AND 2 OF EACH CYCLE OF THERAPY
     Route: 041
     Dates: start: 20210623, end: 20210811
  7. TRILACICLIB [Suspect]
     Active Substance: TRILACICLIB
     Indication: Myelosuppression
     Dosage: TIME INTERVAL: CYCLICAL; TRANSITIONED TO MAINTENANCE THERAPY;?240 MG/M2 ON DAY 1 AND 2 OF EACH CY...
     Dates: start: 20210825, end: 20210826
  8. TRILACICLIB [Suspect]
     Active Substance: TRILACICLIB
     Indication: Myelosuppression
     Dosage: TIME INTERVAL: CYCLICAL; 240 MG/M2 ON DAY 1 AND 2 OF EACH CYCLE OF THERAPY
     Route: 041
     Dates: start: 20210908, end: 20210909
  9. TRILACICLIB [Suspect]
     Active Substance: TRILACICLIB
     Indication: Myelosuppression
     Dosage: TIME INTERVAL: CYCLICAL; 240 MG/M2 ON DAY 1 AND 2 OF EACH CYCLE OF THERAPY
     Route: 041
     Dates: start: 20210922
  10. BEVACIZUMAB [Suspect]
     Active Substance: BEVACIZUMAB
     Indication: Colorectal cancer metastatic
     Dosage: TIME INTERVAL: CYCLICAL; 5 MG/KG ON DAY 1 OF EACH CYCLE
     Route: 041
     Dates: start: 20210407, end: 20210407
  11. BEVACIZUMAB [Suspect]
     Active Substance: BEVACIZUMAB
     Indication: Colorectal cancer metastatic
     Dosage: TIME INTERVAL: CYCLICAL; 5 MG/KG ON DAY 1 OF EACH CYCLE
     Route: 041
     Dates: start: 20210421, end: 20210505
  12. BEVACIZUMAB [Suspect]
     Active Substance: BEVACIZUMAB
     Indication: Colorectal cancer metastatic
     Dosage: TIME INTERVAL: CYCLICAL; 5 MG/KG ON DAY 1 OF EACH CYCLE
     Route: 041
     Dates: start: 20210519, end: 20210519
  13. BEVACIZUMAB [Suspect]
     Active Substance: BEVACIZUMAB
     Indication: Colorectal cancer metastatic
     Dosage: TIME INTERVAL: CYCLICAL; 5 MG/KG ON DAY 1 OF EACH CYCLE
     Route: 041
     Dates: start: 20210602, end: 20210602
  14. BEVACIZUMAB [Suspect]
     Active Substance: BEVACIZUMAB
     Indication: Colorectal cancer metastatic
     Dosage: TIME INTERVAL: CYCLICAL; 5 MG/KG ON DAY 1 OF EACH CYCLE
     Route: 041
     Dates: start: 20210623, end: 20210721
  15. BEVACIZUMAB [Suspect]
     Active Substance: BEVACIZUMAB
     Indication: Colorectal cancer metastatic
     Dosage: TIME INTERVAL: CYCLICAL; 5 MG/KG ON DAY 1 OF EACH CYCLE
     Route: 041
     Dates: start: 20210825
  16. FLUOROURACIL [Suspect]
     Active Substance: FLUOROURACIL
     Indication: Colorectal cancer metastatic
     Dosage: TIME INTERVAL: CYCLICAL; 2400 MG/M2 BY CONTINUOUS INFUSION OVER 48 HOURS TO START ON DAY 1 OF EAC...
     Route: 041
     Dates: start: 20210407, end: 20210409
  17. FLUOROURACIL [Suspect]
     Active Substance: FLUOROURACIL
     Indication: Colorectal cancer metastatic
     Dosage: TIME INTERVAL: CYCLICAL; 2400 MG/M2 BY CONTINUOUS INFUSION OVER 48 HOURS TO START ON DAY 1 OF EAC...
     Route: 041
     Dates: start: 20210421, end: 20210423
  18. FLUOROURACIL [Suspect]
     Active Substance: FLUOROURACIL
     Indication: Colorectal cancer metastatic
     Dosage: TIME INTERVAL: CYCLICAL; 2400 MG/M2 BY CONTINUOUS INFUSION OVER 48 HOURS TO START ON DAY 1 OF EAC...
     Route: 041
     Dates: start: 20210505, end: 20210507
  19. FLUOROURACIL [Suspect]
     Active Substance: FLUOROURACIL
     Indication: Colorectal cancer metastatic
     Dosage: TIME INTERVAL: CYCLICAL; 2400 MG/M2 BY CONTINUOUS INFUSION OVER 48 HOURS TO START ON DAY 1 OF EAC...
     Route: 041
     Dates: start: 20210519, end: 20210521
  20. FLUOROURACIL [Suspect]
     Active Substance: FLUOROURACIL
     Indication: Colorectal cancer metastatic
     Dosage: TIME INTERVAL: CYCLICAL; 2400 MG/M2 BY CONTINUOUS INFUSION OVER 48 HOURS TO START ON DAY 1 OF EAC...
     Route: 041
     Dates: start: 20210602, end: 20210604
  21. FLUOROURACIL [Suspect]
     Active Substance: FLUOROURACIL
     Indication: Colorectal cancer metastatic
     Dosage: TIME INTERVAL: CYCLICAL
     Dates: start: 20210623, end: 20210723
  22. FLUOROURACIL [Suspect]
     Active Substance: FLUOROURACIL
     Indication: Colorectal cancer metastatic
     Dosage: TIME INTERVAL: CYCLICAL; TRANSITIONED TO MAINTENANCE THERAPY?2400 MG/M2 BY CONTINUOUS INFUSION OV...
     Route: 041
     Dates: start: 20210825, end: 20210827
  23. FLUOROURACIL [Suspect]
     Active Substance: FLUOROURACIL
     Indication: Colorectal cancer metastatic
     Dosage: TIME INTERVAL: CYCLICAL; 2400 MG/M2 BY CONTINUOUS INFUSION OVER 48 HOURS TO START ON DAY 1 OF EAC...
     Route: 041
     Dates: start: 20210908, end: 20210910
  24. FLUOROURACIL [Suspect]
     Active Substance: FLUOROURACIL
     Indication: Colorectal cancer metastatic
     Dosage: TIME INTERVAL: CYCLICAL; 2400 MG/M2 BY CONTINUOUS INFUSION OVER 48 HOURS TO START ON DAY 1 OF EAC...
     Route: 041
     Dates: start: 20210922
  25. IRINOTECAN [Suspect]
     Active Substance: IRINOTECAN
     Indication: Colorectal cancer metastatic
     Dosage: TIME INTERVAL: CYCLICAL; 165 MG/M2 ON DAY 1 OF EACH CYCLE
     Route: 041
     Dates: start: 20210407, end: 20210407
  26. IRINOTECAN [Suspect]
     Active Substance: IRINOTECAN
     Indication: Colorectal cancer metastatic
     Dosage: TIME INTERVAL: CYCLICAL; 165 MG/M2 ON DAY 1 OF EACH CYCLE
     Route: 041
     Dates: start: 20210421, end: 20210421
  27. IRINOTECAN [Suspect]
     Active Substance: IRINOTECAN
     Indication: Colorectal cancer metastatic
     Dosage: TIME INTERVAL: CYCLICAL; 165 MG/M2 ON DAY 1 OF EACH CYCLE
     Route: 041
     Dates: start: 20210505, end: 20210505
  28. IRINOTECAN [Suspect]
     Active Substance: IRINOTECAN
     Indication: Colorectal cancer metastatic
     Dosage: TIME INTERVAL: CYCLICAL; 165 MG/M2 ON DAY 1 OF EACH CYCLE
     Route: 041
     Dates: start: 20210519, end: 20210519
  29. IRINOTECAN [Suspect]
     Active Substance: IRINOTECAN
     Indication: Colorectal cancer metastatic
     Dosage: TIME INTERVAL: CYCLICAL; 165 MG/M2 ON DAY 1 OF EACH CYCLE
     Route: 041
     Dates: start: 20210602, end: 20210602
  30. IRINOTECAN [Suspect]
     Active Substance: IRINOTECAN
     Indication: Colorectal cancer metastatic
     Dosage: TIME INTERVAL: CYCLICAL; 165 MG/M2 ON DAY 1 OF EACH CYCLE
     Route: 041
     Dates: start: 20210623, end: 20210811
  31. LEUCOVORIN [Suspect]
     Active Substance: LEUCOVORIN
     Indication: Colorectal cancer metastatic
     Dosage: TIME INTERVAL: CYCLICAL; 400 MG/M2 ON DAY 1 OF EACH CYCLE
     Route: 041
     Dates: start: 20210407, end: 20210721
  32. LEUCOVORIN [Suspect]
     Active Substance: LEUCOVORIN
     Indication: Colorectal cancer metastatic
     Dosage: TIME INTERVAL: CYCLICAL; TRANSITIONED TO MAINTENANCE THERAPY?400 MG/M2 ON DAY 1 OF EACH CYCLE
     Route: 041
     Dates: start: 20210825
  33. OXALIPLATIN [Suspect]
     Active Substance: OXALIPLATIN
     Indication: Colorectal cancer metastatic
     Dosage: TIME INTERVAL: CYCLICAL; 85 MG/M2 ON DAY 1 OF EACH CYCLE
     Route: 041
     Dates: start: 20210407, end: 20210407
  34. OXALIPLATIN [Suspect]
     Active Substance: OXALIPLATIN
     Indication: Colorectal cancer metastatic
     Dosage: TIME INTERVAL: CYCLICAL; 85 MG/M2 ON DAY 1 OF EACH CYCLE
     Route: 041
     Dates: start: 20210421, end: 20210421
  35. OXALIPLATIN [Suspect]
     Active Substance: OXALIPLATIN
     Indication: Colorectal cancer metastatic
     Dosage: TIME INTERVAL: CYCLICAL; 85 MG/M2 ON DAY 1 OF EACH CYCLE
     Route: 041
     Dates: start: 20210505, end: 20210505
  36. OXALIPLATIN [Suspect]
     Active Substance: OXALIPLATIN
     Indication: Colorectal cancer metastatic
     Dosage: TIME INTERVAL: CYCLICAL; 85 MG/M2 ON DAY 1 OF EACH CYCLE
     Route: 041
     Dates: start: 20210519, end: 20210519
  37. OXALIPLATIN [Suspect]
     Active Substance: OXALIPLATIN
     Indication: Colorectal cancer metastatic
     Dosage: TIME INTERVAL: CYCLICAL; 85 MG/M2 ON DAY 1 OF EACH CYCLE
     Route: 041
     Dates: start: 20210602, end: 20210602
  38. OXALIPLATIN [Suspect]
     Active Substance: OXALIPLATIN
     Indication: Colorectal cancer metastatic
     Dosage: TIME INTERVAL: CYCLICAL; 85 MG/M2 ON DAY 1 OF EACH CYCLE
     Route: 041
     Dates: start: 20210623, end: 20210721
  39. 1324519 (GLOBALC3Sep20): Acetaminophen [Concomitant]
     Indication: Pain management
     Route: 048
     Dates: start: 2020
  40. 1692462 (GLOBALC3Sep20): Ondansetron [Concomitant]
     Indication: Nausea
     Dosage: TIME INTERVAL: AS NECESSARY
     Route: 048
     Dates: start: 20210318
  41. 1327134 (GLOBALC3Sep20): Mirtazapine [Concomitant]
     Indication: Insomnia
     Route: 048
     Dates: start: 20210414
  42. 1262443 (GLOBALC3Sep20): Lasix (Furosemide) [Concomitant]
     Indication: Oedema
     Route: 048
     Dates: start: 20210707
  43. 1326442 (GLOBALC3Sep20): Potassium Chloride [Concomitant]
     Indication: Hypokalaemia
     Route: 048
     Dates: start: 20210721
  44. 3864262 (GLOBALC3Sep20): Norco (Hydrocodone + Acetaminophen) [Concomitant]
     Indication: Cancer pain
     Dosage: 10 - 325 MG
     Route: 048
     Dates: start: 20210408
  45. 1328337 (GLOBALC3Sep20): Soma [Concomitant]
     Indication: Muscle spasms
     Dosage: TIME INTERVAL: AS NECESSARY
     Route: 048
     Dates: start: 20210526

REACTIONS (1)
  - Device related thrombosis [Not Recovered/Not Resolved]

NARRATIVE: CASE EVENT DATE: 20210922
